FAERS Safety Report 8458385-5 (Version None)
Quarter: 2012Q2

REPORT INFORMATION
  Report Type: 
  Country: None (occurrence: None)
  Receive Date: 20120622
  Receipt Date: 20120615
  Transmission Date: 20120825
  Serious: Yes (Hospitalization, Other)
  Sender: FDA-Public Use
  Company Number: US-ABBOTT-12P-163-0932977-00

PATIENT
  Sex: Female
  Weight: 71.732 kg

DRUGS (10)
  1. ASPIRIN [Concomitant]
     Indication: CARDIAC DISORDER
  2. VENTOLIN [Concomitant]
     Indication: ASTHMA
     Route: 055
  3. MORPHINE [Concomitant]
     Indication: RHEUMATOID ARTHRITIS
  4. XANAX [Concomitant]
     Indication: ANXIETY
  5. DILTIAZAM ER [Concomitant]
     Indication: TACHYCARDIA
  6. FOLIC ACID [Concomitant]
     Indication: RHEUMATOID ARTHRITIS
  7. VENTOLIN [Concomitant]
     Indication: PULMONARY FIBROSIS
  8. IBUPROFEN [Concomitant]
     Indication: RHEUMATOID ARTHRITIS
  9. HYDROCODONE [Concomitant]
     Indication: RHEUMATOID ARTHRITIS
  10. HUMIRA [Suspect]
     Indication: RHEUMATOID ARTHRITIS
     Dates: start: 20050101, end: 20111101

REACTIONS (20)
  - THERMAL BURN [None]
  - SPLEEN DISORDER [None]
  - HEMIPARESIS [None]
  - BASAL CELL CARCINOMA [None]
  - CEREBROVASCULAR ACCIDENT [None]
  - TENDON RUPTURE [None]
  - VULVOVAGINAL ERYTHEMA [None]
  - EPISTAXIS [None]
  - HEPATIC LESION [None]
  - FACIAL PARESIS [None]
  - DYSPNOEA [None]
  - URINARY TRACT INFECTION [None]
  - IMPAIRED HEALING [None]
  - VAGINAL MUCOSAL BLISTERING [None]
  - VULVOVAGINAL SWELLING [None]
  - VULVOVAGINAL RASH [None]
  - FAECAL INCONTINENCE [None]
  - VAGINAL HAEMORRHAGE [None]
  - HEART VALVE INCOMPETENCE [None]
  - PAIN IN EXTREMITY [None]
